FAERS Safety Report 4777043-1 (Version None)
Quarter: 2005Q3

REPORT INFORMATION
  Report Type: 
  Country: None (occurrence: None)
  Receive Date: 20050923
  Receipt Date: 20050916
  Transmission Date: 20060218
  Serious: Yes (Other)
  Sender: FDA-Public Use
  Company Number: PHNU2005DE03197

PATIENT
  Sex: Female

DRUGS (2)
  1. FORADIL [Suspect]
     Indication: BRONCHITIS
     Dosage: 1 HUB, ONCE/SINGLE
  2. MIFLONIDE [Suspect]
     Indication: BRONCHITIS
     Dosage: 1 HUB, ONCE/SINGLE

REACTIONS (1)
  - CIRCULATORY COLLAPSE [None]
